FAERS Safety Report 10154802 (Version 1)
Quarter: 2014Q2

REPORT INFORMATION
  Report Type: Spontaneous
  Country: US (occurrence: None)
  Receive Date: 20140505
  Receipt Date: 20140505
  Transmission Date: 20141212
  Serious: Yes (Hospitalization)
  Sender: FDA-Public Use
  Company Number: None

PATIENT
  Age: 46 Year
  Sex: Female

DRUGS (1)
  1. HYDROMORPHONE [Suspect]
     Indication: SPINAL CORD NEOPLASM
     Dosage: 1-2 TABLETS AS NEEDED FOR PAIN
     Route: 048
     Dates: start: 20130401, end: 20130823

REACTIONS (1)
  - Pneumothorax [None]
